FAERS Safety Report 12581413 (Version 2)
Quarter: 2016Q3

REPORT INFORMATION
  Report Type: Report from Study
  Country: US (occurrence: US)
  Receive Date: 20160721
  Receipt Date: 20160919
  Transmission Date: 20161109
  Serious: Yes (Other)
  Sender: FDA-Public Use
  Company Number: PHEH2016US017984

PATIENT
  Age: 86 Year
  Sex: Female
  Weight: 66.21 kg

DRUGS (1)
  1. GLEEVEC [Suspect]
     Active Substance: IMATINIB MESYLATE
     Indication: GASTROINTESTINAL STROMAL TUMOUR
     Dosage: 400 MG, QD
     Route: 048
     Dates: start: 20160616, end: 20160719

REACTIONS (6)
  - Peripheral swelling [Unknown]
  - Haemorrhage [Unknown]
  - Abdominal pain upper [Unknown]
  - Visual acuity reduced [Not Recovered/Not Resolved]
  - Eye disorder [Unknown]
  - Cardiac disorder [Unknown]

NARRATIVE: CASE EVENT DATE: 20160719
